FAERS Safety Report 8521659-3 (Version None)
Quarter: 2012Q3

REPORT INFORMATION
  Report Type: 
  Country: None (occurrence: None)
  Receive Date: 20120719
  Receipt Date: 20120717
  Transmission Date: 20120928
  Serious: Yes (Hospitalization)
  Sender: FDA-Public Use
  Company Number: PHFR2012GB004053

PATIENT

DRUGS (1)
  1. AREDIA [Suspect]
     Indication: OSTEOPOROSIS
     Dosage: UNKNOWN DOSE EVERY 3 MONTHS

REACTIONS (3)
  - INFECTION [None]
  - INFLUENZA LIKE ILLNESS [None]
  - PYREXIA [None]
